FAERS Safety Report 25213816 (Version 1)
Quarter: 2025Q2

REPORT INFORMATION
  Report Type: Spontaneous
  Country: US (occurrence: None)
  Receive Date: 20250417
  Receipt Date: 20250417
  Transmission Date: 20250716
  Serious: No
  Sender: FDA-CTU
  Company Number: None

PATIENT
  Age: 43 Year
  Sex: Male
  Weight: 152 kg

DRUGS (1)
  1. ZEPBOUND [Suspect]
     Active Substance: TIRZEPATIDE
     Indication: Weight decreased
     Route: 058

REACTIONS (5)
  - Gastrooesophageal reflux disease [None]
  - Injection site pain [None]
  - Rash [None]
  - Injection site pruritus [None]
  - Injection site irritation [None]

NARRATIVE: CASE EVENT DATE: 20241127
